FAERS Safety Report 5827497-4 (Version None)
Quarter: 2008Q3

REPORT INFORMATION
  Report Type: 
  Country: None (occurrence: None)
  Receive Date: 20080725
  Receipt Date: 20080714
  Transmission Date: 20090109
  Serious: Yes (Hospitalization)
  Sender: FDA-Public Use
  Company Number: 2008BI012421

PATIENT
  Age: 75 Year
  Sex: Female

DRUGS (1)
  1. AVONEX [Suspect]
     Dosage: 30UG;QW;IM
     Route: 030
     Dates: start: 19990701

REACTIONS (4)
  - ABASIA [None]
  - ASPIRATION [None]
  - DELUSION [None]
  - PNEUMONIA [None]
